FAERS Safety Report 6369880-7 (Version None)
Quarter: 2009Q3

REPORT INFORMATION
  Report Type: 
  Country: None (occurrence: None)
  Receive Date: 20090923
  Receipt Date: 20070510
  Transmission Date: 20100115
  Serious: Yes (Hospitalization)
  Sender: FDA-Public Use
  Company Number: US-ASTRAZENECA-2006UW10866

PATIENT
  Sex: Female
  Weight: 47.6 kg

DRUGS (19)
  1. SEROQUEL [Suspect]
     Indication: INSOMNIA
     Route: 048
  2. SEROQUEL [Suspect]
     Indication: STRESS
     Route: 048
  3. SEROQUEL [Suspect]
     Indication: SLEEP DISORDER
     Route: 048
  4. SEROQUEL [Suspect]
     Dosage: 25-300 MG
     Route: 048
     Dates: start: 20041025
  5. SEROQUEL [Suspect]
     Dosage: 25-300 MG
     Route: 048
     Dates: start: 20041025
  6. SEROQUEL [Suspect]
     Dosage: 25-300 MG
     Route: 048
     Dates: start: 20041025
  7. ZOLOFT [Concomitant]
  8. VIOXX [Concomitant]
  9. LEXAPRO [Concomitant]
  10. PHENERGAN [Concomitant]
  11. BEXTRA [Concomitant]
  12. VICODIN [Concomitant]
  13. TYLENOL (CAPLET) [Concomitant]
  14. CODEINE SULFATE [Concomitant]
  15. ULTRAM [Concomitant]
  16. DARVOCET [Concomitant]
  17. ELAVIL [Concomitant]
  18. LIDODERM [Concomitant]
  19. DESYREL [Concomitant]

REACTIONS (15)
  - ABDOMINAL PAIN [None]
  - ABDOMINAL PAIN UPPER [None]
  - ALTERED STATE OF CONSCIOUSNESS [None]
  - BACK PAIN [None]
  - BONE PAIN [None]
  - DEAFNESS [None]
  - DIABETES MELLITUS [None]
  - DIARRHOEA [None]
  - DYSTHYMIC DISORDER [None]
  - FATIGUE [None]
  - INSOMNIA [None]
  - JOINT STIFFNESS [None]
  - NAUSEA [None]
  - PAIN [None]
  - VOMITING [None]
